FAERS Safety Report 7679181-2 (Version None)
Quarter: 2011Q3

REPORT INFORMATION
  Report Type: 
  Country: None (occurrence: None)
  Receive Date: 20110812
  Receipt Date: 20110726
  Transmission Date: 20111222
  Serious: No
  Sender: FDA-Public Use
  Company Number: CA-JNJFOC-20110802780

PATIENT
  Sex: Male

DRUGS (1)
  1. SIMPONI [Suspect]
     Indication: ANKYLOSING SPONDYLITIS
     Route: 058
     Dates: start: 20100501, end: 20110402

REACTIONS (2)
  - HERPES ZOSTER [None]
  - PROSTATIC SPECIFIC ANTIGEN INCREASED [None]
